FAERS Safety Report 7624195-1 (Version None)
Quarter: 2011Q3

REPORT INFORMATION
  Report Type: 
  Country: None (occurrence: None)
  Receive Date: 20110720
  Receipt Date: 20110720
  Transmission Date: 20111222
  Serious: Yes (Other)
  Sender: FDA-Public Use
  Company Number: None

PATIENT
  Age: 56 Year
  Sex: Female
  Weight: 77.11 kg

DRUGS (2)
  1. MACROBID [Suspect]
     Indication: URINARY TRACT INFECTION
     Dosage: 100MG
     Route: 048
     Dates: start: 19980101, end: 20060101
  2. MACROBID [Suspect]
     Indication: ANTIBIOTIC THERAPY
     Dosage: 100MG
     Route: 048
     Dates: start: 19980101, end: 20060101

REACTIONS (2)
  - INTERSTITIAL LUNG DISEASE [None]
  - HEPATITIS [None]
